FAERS Safety Report 24636972 (Version 2)
Quarter: 2024Q4

REPORT INFORMATION
  Report Type: Spontaneous
  Country: JP (occurrence: JP)
  Receive Date: 20241119
  Receipt Date: 20241231
  Transmission Date: 20250114
  Serious: Yes (Hospitalization, Other)
  Sender: CATALYST PHARMA
  Company Number: JP-CATALYSTPHARMACEUTICALPARTNERS-JP-CATA-24-01345

PATIENT
  Age: 44 Year
  Sex: Female

DRUGS (8)
  1. FYCOMPA [Suspect]
     Active Substance: PERAMPANEL
     Indication: Epilepsy
     Dosage: (2 MILLIGRAM(S)), FREQUENCY UNKNOWN
     Route: 042
     Dates: start: 20241021, end: 20241025
  2. OLANZAPINE [Suspect]
     Active Substance: OLANZAPINE
     Indication: Product used for unknown indication
     Dosage: 10.0 MILLIGRAM(S) (10 MILLIGRAM(S), 1 IN 1 DAY)
     Route: 048
     Dates: start: 20241022
  3. OLANZAPINE [Suspect]
     Active Substance: OLANZAPINE
     Dosage: 5.0 MILLIGRAM(S) (5 MILLIGRAM(S), 1 IN 1 DAY)
     Route: 048
     Dates: start: 20241021, end: 20241021
  4. VONOPRAZAN FUMARATE [Concomitant]
     Active Substance: VONOPRAZAN FUMARATE
     Indication: Product used for unknown indication
     Dosage: DOSE AND FREQUENCY UNKNOWN
     Route: 065
     Dates: start: 20241022, end: 20241025
  5. HERBALS [Concomitant]
     Active Substance: HERBALS
     Indication: Product used for unknown indication
     Dosage: DOSE AND FREQUENCY UNKNOWN
     Route: 065
     Dates: start: 20241022, end: 20241022
  6. HERBALS [Concomitant]
     Active Substance: HERBALS
     Dosage: DOSE AND FREQUENCY UNKNOWN
     Route: 065
     Dates: start: 20241023, end: 20241024
  7. HERBALS [Concomitant]
     Active Substance: HERBALS
     Dosage: DOSE AND FREQUENCY UNKNOWN
     Route: 065
     Dates: start: 20241025, end: 20241025
  8. LORAZEPAM [Concomitant]
     Active Substance: LORAZEPAM
     Indication: Product used for unknown indication
     Dosage: DOSE AND FREQUENCY UNKNOWN
     Route: 065
     Dates: start: 20241021

REACTIONS (7)
  - Seizure [Unknown]
  - Seizure [Unknown]
  - Cerebral haemorrhage [Unknown]
  - Aspartate aminotransferase increased [Recovering/Resolving]
  - Alanine aminotransferase increased [Recovering/Resolving]
  - Blood creatine phosphokinase increased [Recovering/Resolving]
  - Fall [Unknown]

NARRATIVE: CASE EVENT DATE: 20241021
